FAERS Safety Report 5412043-X (Version None)
Quarter: 2007Q3

REPORT INFORMATION
  Report Type: 
  Country: None (occurrence: None)
  Receive Date: 20070813
  Receipt Date: 20070808
  Transmission Date: 20080115
  Serious: Yes (Life-Threatening, Other)
  Sender: FDA-Public Use
  Company Number: PHEH2005US11163

PATIENT
  Age: 55 Year
  Sex: Female

DRUGS (6)
  1. ZOMETA [Suspect]
     Indication: BREAST CANCER METASTATIC
     Dosage: 4 MG, IV 1XMONTH
     Route: 042
     Dates: start: 20011101, end: 20051101
  2. FASLODEX [Concomitant]
     Dosage: 250 MG, UNK
     Route: 030
     Dates: start: 20050601, end: 20050629
  3. TAMOXIFEN CITRATE [Concomitant]
     Indication: BREAST CANCER
     Dosage: 20 MG, UNK
     Route: 048
     Dates: start: 20050901
  4. ANASTROZOLE [Concomitant]
     Dosage: 1 MG, QD
     Dates: start: 20020410, end: 20050601
  5. ANASTROZOLE [Concomitant]
     Dosage: 1 MG, QD
     Dates: start: 20020410, end: 20050601
  6. CALCIUM ACETATE [Concomitant]

REACTIONS (24)
  - ASTHENIA [None]
  - BACK PAIN [None]
  - EAR DISCOMFORT [None]
  - EAR PAIN [None]
  - EYE ROLLING [None]
  - FATIGUE [None]
  - HYPOACUSIS [None]
  - HYPOTONIA [None]
  - INCREASED TENDENCY TO BRUISE [None]
  - LUNG NEOPLASM MALIGNANT [None]
  - MALIGNANT NEOPLASM PROGRESSION [None]
  - MASTICATION DISORDER [None]
  - METASTASES TO BONE [None]
  - NASAL CONGESTION [None]
  - OSTEONECROSIS [None]
  - OTITIS MEDIA [None]
  - PALLOR [None]
  - PANCYTOPENIA [None]
  - PHARYNGOLARYNGEAL PAIN [None]
  - PYREXIA [None]
  - RESPIRATORY DISORDER [None]
  - THROAT CANCER [None]
  - TUMOUR MARKER INCREASED [None]
  - TYMPANIC MEMBRANE HYPERAEMIA [None]
